FAERS Safety Report 19625928 (Version 1)
Quarter: 2021Q3

REPORT INFORMATION
  Report Type: Spontaneous
  Country: US (occurrence: US)
  Receive Date: 20210729
  Receipt Date: 20210729
  Transmission Date: 20211014
  Serious: Yes (Hospitalization, Other)
  Sender: FDA-Public Use
  Company Number: US-OXFORD PHARMACEUTICALS, LLC-2114407

PATIENT
  Sex: Male

DRUGS (4)
  1. SERTRALINE [Suspect]
     Active Substance: SERTRALINE HYDROCHLORIDE
     Route: 064
  2. TRAZODONE [Suspect]
     Active Substance: TRAZODONE HYDROCHLORIDE
     Route: 064
  3. VENLAFAXINE [Suspect]
     Active Substance: VENLAFAXINE HYDROCHLORIDE
     Route: 064
  4. BUSPIRONE HYDROCHLORIDE TABLETS, USP 30MG [Suspect]
     Active Substance: BUSPIRONE HYDROCHLORIDE
     Indication: PRODUCT USED FOR UNKNOWN INDICATION
     Route: 064

REACTIONS (12)
  - Foetal growth restriction [Recovering/Resolving]
  - Hypoglycaemia [Recovering/Resolving]
  - Tremor [Recovering/Resolving]
  - Agitation neonatal [Recovering/Resolving]
  - Foetal exposure during pregnancy [Unknown]
  - Feeding disorder [Recovering/Resolving]
  - Myoclonus [Recovering/Resolving]
  - Hypopnoea [Recovering/Resolving]
  - Livedo reticularis [Recovering/Resolving]
  - Serotonin syndrome [Recovering/Resolving]
  - Hypertonia neonatal [Recovering/Resolving]
  - Drug withdrawal syndrome neonatal [Recovering/Resolving]
